FAERS Safety Report 9999646 (Version 4)
Quarter: 2014Q3

REPORT INFORMATION
  Report Type: Spontaneous
  Country: US (occurrence: US)
  Receive Date: 20140312
  Receipt Date: 20140702
  Transmission Date: 20150326
  Serious: Yes (Hospitalization, Other)
  Sender: FDA-Public Use
  Company Number: US-BAYER-2013-158731

PATIENT
  Sex: Female

DRUGS (1)
  1. BAYER LOW DOSE [Suspect]
     Active Substance: ASPIRIN
     Indication: ISCHAEMIC HEART DISEASE PROPHYLAXIS
     Dosage: UNK
     Dates: start: 201309

REACTIONS (16)
  - Fungal infection [Recovered/Resolved]
  - Fungal infection [Unknown]
  - Pain [Unknown]
  - Device failure [Not Recovered/Not Resolved]
  - Hypothalamo-pituitary disorder [Not Recovered/Not Resolved]
  - Dysuria [Not Recovered/Not Resolved]
  - Cholecystitis infective [Recovered/Resolved]
  - Lung disorder [Not Recovered/Not Resolved]
  - Incision site haemorrhage [Unknown]
  - Furuncle [Recovering/Resolving]
  - Furuncle [Recovering/Resolving]
  - Omphalitis [Recovered/Resolved]
  - Product quality issue [None]
  - Device failure [Not Recovered/Not Resolved]
  - Furuncle [None]
  - Lung infection [None]

NARRATIVE: CASE EVENT DATE: 2013
